FAERS Safety Report 17173677 (Version 1)
Quarter: 2019Q4

REPORT INFORMATION
  Report Type: Spontaneous
  Country: US (occurrence: US)
  Receive Date: 20191218
  Receipt Date: 20191218
  Transmission Date: 20200122
  Serious: Yes (Other)
  Sender: FDA-Public Use
  Company Number: None

PATIENT
  Age: 34 Year
  Sex: Female
  Weight: 112.5 kg

DRUGS (1)
  1. NEXPLANON [Suspect]
     Active Substance: ETONOGESTREL
     Indication: CONTRACEPTION
     Dosage: ?          QUANTITY:1 IMPLANT;OTHER FREQUENCY:ONCE;?
     Route: 058
     Dates: start: 20160818, end: 20190410

REACTIONS (5)
  - Ovarian cyst [None]
  - Salpingo-oophorectomy bilateral [None]
  - Infertility female [None]
  - Device breakage [None]
  - Borderline ovarian tumour [None]

NARRATIVE: CASE EVENT DATE: 20190403
